FAERS Safety Report 8702580 (Version 2)
Quarter: 2012Q4

REPORT INFORMATION
  Report Type: 
  Country: US (occurrence: US)
  Receive Date: 20120803
  Receipt Date: 20121107
  Transmission Date: 20130627
  Serious: Yes (Hospitalization, Other)
  Sender: FDA-Public Use
  Company Number: US-PFIZER INC-2012051377

PATIENT
  Age: 52 Year
  Sex: Male

DRUGS (10)
  1. CHANTIX [Suspect]
     Indication: SMOKING CESSATION THERAPY
     Dosage: starter dosage and approximately 4mg
     Dates: start: 2005, end: 2008
  2. AVANDIA [Concomitant]
     Indication: DIABETES
     Dosage: UNK
     Dates: start: 1999
  3. LORAZEPAM [Concomitant]
     Indication: ANXIETY
     Dosage: UNK
     Dates: start: 1999
  4. LORAZEPAM [Concomitant]
     Indication: INSOMNIA
  5. BUSPAR [Concomitant]
     Indication: DEPRESSION
     Dosage: UNK
     Dates: start: 1999
  6. GLIPIZIDE [Concomitant]
     Indication: DIABETES
     Dosage: UNK
     Dates: start: 1999
  7. GEMFIBROZIL [Concomitant]
     Indication: CHOLESTEROL
     Dosage: UNK
     Dates: start: 1999
  8. FENOFIBRATE [Concomitant]
     Indication: CHOLESTEROL
     Dosage: UNK
     Dates: start: 1999
  9. CRESTOR [Concomitant]
     Indication: CHOLESTEROL
     Dosage: UNK
     Dates: start: 1999
  10. PROZAC [Concomitant]
     Indication: DEPRESSION
     Dosage: UNK
     Dates: start: 2008

REACTIONS (4)
  - Intentional overdose [Recovered/Resolved]
  - Suicide attempt [Recovered/Resolved]
  - Bipolar disorder [Not Recovered/Not Resolved]
  - Depression [Not Recovered/Not Resolved]
